FAERS Safety Report 6831188-0 (Version None)
Quarter: 2010Q3

REPORT INFORMATION
  Report Type: 
  Country: None (occurrence: None)
  Receive Date: 20100712
  Receipt Date: 20100704
  Transmission Date: 20110219
  Serious: Yes (Death, Life-Threatening)
  Sender: FDA-Public Use
  Company Number: BE-JNJFOC-20100702372

PATIENT
  Age: 59 Year
  Sex: Male

DRUGS (2)
  1. HALOPERIDOL [Suspect]
     Indication: BIPOLAR I DISORDER
     Route: 065
  2. CLONAZEPAM [Suspect]
     Indication: BIPOLAR I DISORDER
     Route: 065

REACTIONS (1)
  - EMBOLISM VENOUS [None]
